FAERS Safety Report 5850181-8 (Version None)
Quarter: 2008Q3

REPORT INFORMATION
  Report Type: 
  Country: None (occurrence: None)
  Receive Date: 20080819
  Receipt Date: 20080805
  Transmission Date: 20090109
  Serious: No
  Sender: FDA-Public Use
  Company Number: US-BOEHRINGER INGELHEIM GMBH, GERMANY-2008-BP-12304BP

PATIENT
  Age: 71 Year
  Sex: Female

DRUGS (3)
  1. ATROVENT HFA [Suspect]
     Indication: ASTHMA
     Dosage: 17-34 MCG
     Route: 055
     Dates: start: 20080718, end: 20080801
  2. FLOVENT [Suspect]
     Indication: ASTHMA
     Route: 055
  3. XANAX [Concomitant]
     Indication: ANXIETY

REACTIONS (1)
  - INTRAOCULAR PRESSURE INCREASED [None]
